FAERS Safety Report 9917114 (Version 2)
Quarter: 2014Q1

REPORT INFORMATION
  Report Type: Spontaneous
  Country: US (occurrence: US)
  Receive Date: 20140221
  Receipt Date: 20140310
  Transmission Date: 20141002
  Serious: Yes (Hospitalization)
  Sender: FDA-Public Use
  Company Number: US-009507513-1402USA007557

PATIENT
  Sex: Male

DRUGS (2)
  1. INTRONA [Suspect]
     Indication: MENINGIOMA
     Dosage: 5 MILLION IU, QOD
     Route: 058
  2. INTRONA [Suspect]
     Dosage: 5 MILLION IU, QOD
     Route: 058

REACTIONS (2)
  - Haematochezia [Recovering/Resolving]
  - Fatigue [Recovering/Resolving]
